FAERS Safety Report 6722210-0 (Version None)
Quarter: 2010Q2

REPORT INFORMATION
  Report Type: 
  Country: None (occurrence: None)
  Receive Date: 20100512
  Receipt Date: 20100428
  Transmission Date: 20101027
  Serious: Yes (Hospitalization, Other)
  Sender: FDA-Public Use
  Company Number: FR-ELI_LILLY_AND_COMPANY-FR201004007724

PATIENT
  Sex: Female

DRUGS (2)
  1. PROZAC [Suspect]
     Dosage: 20 MG, DAILY (1/D)
     Route: 048
     Dates: start: 20090101
  2. LEXOMIL [Concomitant]
     Dosage: 3 MG, UNK
     Dates: start: 20090101

REACTIONS (3)
  - DRUG EXPOSURE DURING PREGNANCY [None]
  - HYPEREMESIS GRAVIDARUM [None]
  - PRE-ECLAMPSIA [None]
